FAERS Safety Report 11981710 (Version 1)
Quarter: 2016Q1

REPORT INFORMATION
  Report Type: Spontaneous
  Country: US (occurrence: None)
  Receive Date: 20160129
  Receipt Date: 20160129
  Transmission Date: 20160526
  Serious: Yes (Hospitalization)
  Sender: FDA-Public Use
  Company Number: None

PATIENT
  Age: 68 Year
  Sex: Female
  Weight: 129.8 kg

DRUGS (15)
  1. LISINOPRIL. [Suspect]
     Active Substance: LISINOPRIL
     Indication: HYPERTENSION
     Dosage: CHRONIC
     Route: 048
  2. ECOTRIN [Concomitant]
     Active Substance: ASPIRIN
  3. IMDUR [Concomitant]
     Active Substance: ISOSORBIDE MONONITRATE
  4. MAALOX ANTACID [Concomitant]
     Active Substance: ALUMINUM HYDROXIDE\DIMETHICONE\MAGNESIUM HYDROXIDE
  5. LIPITOR [Concomitant]
     Active Substance: ATORVASTATIN CALCIUM
  6. NORCO [Concomitant]
     Active Substance: ACETAMINOPHEN\HYDROCODONE BITARTRATE
  7. NEURONTIN [Concomitant]
     Active Substance: GABAPENTIN
  8. HUMALOG [Concomitant]
     Active Substance: INSULIN LISPRO
  9. ULORIC [Concomitant]
     Active Substance: FEBUXOSTAT
  10. LASIX [Concomitant]
     Active Substance: FUROSEMIDE
  11. LEVEMIR [Concomitant]
     Active Substance: INSULIN DETEMIR
  12. CATAPRES [Concomitant]
     Active Substance: CLONIDINE HYDROCHLORIDE
  13. CYMBALTA [Concomitant]
     Active Substance: DULOXETINE HYDROCHLORIDE
  14. DUONEB [Concomitant]
     Active Substance: ALBUTEROL SULFATE\IPRATROPIUM BROMIDE
  15. MELATONIN [Concomitant]
     Active Substance: MELATONIN

REACTIONS (4)
  - Hyperkalaemia [None]
  - Acute kidney injury [None]
  - Hypophagia [None]
  - Decreased appetite [None]

NARRATIVE: CASE EVENT DATE: 20150220
